APPROVED DRUG PRODUCT: NORTREL 1/35-21
Active Ingredient: ETHINYL ESTRADIOL; NORETHINDRONE
Strength: 0.035MG;1MG
Dosage Form/Route: TABLET;ORAL-21
Application: A072693 | Product #001 | TE Code: AB
Applicant: BARR LABORATORIES INC
Approved: Feb 28, 1992 | RLD: No | RS: No | Type: RX